FAERS Safety Report 21348748 (Version 8)
Quarter: 2022Q4

REPORT INFORMATION
  Report Type: Spontaneous
  Country: HU (occurrence: HU)
  Receive Date: 20220919
  Receipt Date: 20221220
  Transmission Date: 20230113
  Serious: Yes (Hospitalization, Other)
  Sender: FDA-Public Use
  Company Number: HU-Accord-277703

PATIENT
  Age: 73 Year
  Sex: Male
  Weight: 90.90 kg

DRUGS (21)
  1. GEMCITABINE [Suspect]
     Active Substance: GEMCITABINE
     Indication: Diffuse large B-cell lymphoma stage IV
     Dosage: 1Q2W
     Route: 042
     Dates: start: 20220712, end: 20220712
  2. OXALIPLATIN [Suspect]
     Active Substance: OXALIPLATIN
     Indication: Diffuse large B-cell lymphoma stage IV
     Dosage: 1Q2W
     Route: 042
     Dates: start: 20220712, end: 20220712
  3. RITUXIMAB [Suspect]
     Active Substance: RITUXIMAB
     Indication: Diffuse large B-cell lymphoma stage IV
     Dosage: 1Q2W
     Route: 042
     Dates: start: 20220711, end: 20220711
  4. FILGRASTIM [Concomitant]
     Active Substance: FILGRASTIM
     Dates: start: 20220816, end: 20220816
  5. BISOPROLOL [Concomitant]
     Active Substance: BISOPROLOL
     Dates: start: 202202
  6. CHLOROPYRAMINE [Concomitant]
     Active Substance: CHLOROPYRAMINE
     Dates: start: 20220822, end: 20220822
  7. ONDANSETRON HYDROCHLORIDE [Concomitant]
     Active Substance: ONDANSETRON HYDROCHLORIDE
     Dates: start: 20220809, end: 20220809
  8. FEBUXOSTAT [Concomitant]
     Active Substance: FEBUXOSTAT
     Dates: start: 20220711
  9. PANTOPRAZOLE SODIUM [Concomitant]
     Active Substance: PANTOPRAZOLE SODIUM
     Dates: start: 20220622
  10. ACETAMINOPHEN [Concomitant]
     Active Substance: ACETAMINOPHEN
     Dates: start: 20220808, end: 20220822
  11. CHLOROPYRAMINE HYDROCHLORIDE [Concomitant]
     Active Substance: CHLOROPYRAMINE HYDROCHLORIDE
     Dates: start: 20220808, end: 20220808
  12. VANCOMYCIN [Concomitant]
     Active Substance: VANCOMYCIN
     Dates: start: 20220831, end: 20220906
  13. PAXIRASOL [Concomitant]
     Dates: start: 20220906, end: 20220913
  14. FUROSEMIDE [Concomitant]
     Active Substance: FUROSEMIDE
     Dates: start: 20220829, end: 20220910
  15. RINGERS SOLUTION [Concomitant]
     Active Substance: CALCIUM CHLORIDE\POTASSIUM CHLORIDE\SODIUM CHLORIDE
     Dates: start: 20220828, end: 20220911
  16. GEMCITABINE [Suspect]
     Active Substance: GEMCITABINE
     Indication: Diffuse large B-cell lymphoma stage IV
     Dosage: 1Q2W
     Route: 042
     Dates: start: 20220809, end: 20220823
  17. OXALIPLATIN [Suspect]
     Active Substance: OXALIPLATIN
     Indication: Diffuse large B-cell lymphoma stage IV
     Dosage: 1Q2W
     Route: 042
     Dates: start: 20220809, end: 20220823
  18. RITUXIMAB [Suspect]
     Active Substance: RITUXIMAB
     Indication: Diffuse large B-cell lymphoma stage IV
     Dosage: 1Q2W
     Route: 042
     Dates: start: 20220808, end: 20220822
  19. RITUXIMAB [Suspect]
     Active Substance: RITUXIMAB
     Indication: Diffuse large B-cell lymphoma stage IV
     Dosage: 1Q2W
     Route: 042
     Dates: start: 20221024
  20. GEMCITABINE [Suspect]
     Active Substance: GEMCITABINE
     Indication: Diffuse large B-cell lymphoma stage IV
     Dosage: 1Q2W
     Route: 042
     Dates: start: 20221025
  21. OXALIPLATIN [Suspect]
     Active Substance: OXALIPLATIN
     Indication: Diffuse large B-cell lymphoma stage IV
     Dosage: 1Q2W
     Route: 042
     Dates: start: 20221025

REACTIONS (1)
  - Febrile neutropenia [Recovered/Resolved]

NARRATIVE: CASE EVENT DATE: 20220828
